FAERS Safety Report 6312285-5 (Version None)
Quarter: 2009Q3

REPORT INFORMATION
  Report Type: 
  Country: None (occurrence: None)
  Receive Date: 20090813
  Receipt Date: 20090730
  Transmission Date: 20100115
  Serious: Yes (Other)
  Sender: FDA-Public Use
  Company Number: DSU-2009-01558

PATIENT
  Sex: Female

DRUGS (2)
  1. OLMESARTAN MEDOXOMIL [Suspect]
     Indication: DRUG USE FOR UNKNOWN INDICATION
     Dosage: PER ORAL
     Route: 048
  2. HYZAAR (HYDROCHLOROTHIAZIDE, LOSARTAN POTASSIUM) (HYDROCHLOROTHIAZIDE, [Concomitant]

REACTIONS (1)
  - HYPOTENSION [None]
